FAERS Safety Report 6937021-0 (Version None)
Quarter: 2010Q3

REPORT INFORMATION
  Report Type: 
  Country: None (occurrence: None)
  Receive Date: 20100823
  Receipt Date: 20100809
  Transmission Date: 20110219
  Serious: Yes (Disabling)
  Sender: FDA-Public Use
  Company Number: PHHY2010US47660

PATIENT
  Sex: Female
  Weight: 62 kg

DRUGS (5)
  1. RECLAST [Suspect]
     Indication: OSTEOPOROSIS
     Dosage: TOTAL DOSE 8 MG
     Dates: start: 20091207
  2. ANTIBIOTICS [Suspect]
  3. BRONCHITIS MEDICATION [Suspect]
  4. MEDICATION TO CALM NERVES [Suspect]
  5. VITAMINS WITH MINERALS [Concomitant]
     Dosage: UNK

REACTIONS (13)
  - ACTIVITIES OF DAILY LIVING IMPAIRED [None]
  - AGGRESSION [None]
  - AMNESIA [None]
  - ANXIETY [None]
  - CONDITION AGGRAVATED [None]
  - DIPLOPIA [None]
  - DRUG ADMINISTRATION ERROR [None]
  - DYSPNOEA [None]
  - HEADACHE [None]
  - NERVOUS SYSTEM DISORDER [None]
  - PALPITATIONS [None]
  - TREMOR [None]
  - VISION BLURRED [None]
